FAERS Safety Report 7775473-7 (Version None)
Quarter: 2011Q3

REPORT INFORMATION
  Report Type: 
  Country: None (occurrence: None)
  Receive Date: 20110921
  Receipt Date: 20110909
  Transmission Date: 20111222
  Serious: Yes (Hospitalization)
  Sender: FDA-Public Use
  Company Number: P1-06047

PATIENT
  Age: 60 Year
  Sex: Female

DRUGS (1)
  1. CHLORAPREP [Suspect]
     Indication: PREOPERATIVE CARE
     Dosage: 10.5ML.ONCE,TOPICAL
     Route: 061
     Dates: start: 20110822

REACTIONS (3)
  - ENTEROCOCCUS TEST POSITIVE [None]
  - PAIN [None]
  - BLISTER [None]
